FAERS Safety Report 25806318 (Version 1)
Quarter: 2025Q3

REPORT INFORMATION
  Report Type: Spontaneous
  Country: CH (occurrence: CH)
  Receive Date: 20250916
  Receipt Date: 20250916
  Transmission Date: 20251020
  Serious: Yes (Hospitalization, Other)
  Sender: ABBVIE
  Company Number: CH-ABBVIE-6457561

PATIENT
  Age: 73 Year
  Sex: Male
  Weight: 61 kg

DRUGS (5)
  1. CARBIDOPA\LEVODOPA [Suspect]
     Active Substance: CARBIDOPA\LEVODOPA
     Indication: Parkinson^s disease
     Route: 050
     Dates: start: 20250616, end: 20250623
  2. CARBIDOPA\LEVODOPA [Suspect]
     Active Substance: CARBIDOPA\LEVODOPA
  3. MIDODRINE HYDROCHLORIDE [Concomitant]
     Active Substance: MIDODRINE HYDROCHLORIDE
     Indication: Product used for unknown indication
     Route: 065
     Dates: start: 20250616
  4. MELATONIN [Concomitant]
     Active Substance: MELATONIN
     Indication: Product used for unknown indication
     Route: 065
  5. QUETIAPINE [Concomitant]
     Active Substance: QUETIAPINE
     Indication: Product used for unknown indication
     Dosage: 37.5 MG DOSE
     Route: 065
     Dates: start: 20250617

REACTIONS (11)
  - Peritonitis [Recovered/Resolved]
  - Ileus paralytic [Unknown]
  - Flatulence [Unknown]
  - Stoma site reaction [Unknown]
  - Debridement [Unknown]
  - Physical deconditioning [Unknown]
  - Malnutrition [Unknown]
  - Device placement issue [Recovering/Resolving]
  - Abdominal pain [Recovering/Resolving]
  - Candida infection [Unknown]
  - Acute abdomen [Recovering/Resolving]

NARRATIVE: CASE EVENT DATE: 20250101
